FAERS Safety Report 24292025 (Version 2)
Quarter: 2024Q4

REPORT INFORMATION
  Report Type: Spontaneous
  Country: CA (occurrence: CA)
  Receive Date: 20240906
  Receipt Date: 20241121
  Transmission Date: 20250114
  Serious: Yes (Death, Other)
  Sender: FRESENIUS KABI
  Company Number: CA-FreseniusKabi-FK202413169

PATIENT
  Age: 55 Year
  Sex: Female

DRUGS (12)
  1. LINEZOLID [Suspect]
     Active Substance: LINEZOLID
     Indication: Infection
  2. ERTAPENEM [Suspect]
     Active Substance: ERTAPENEM
     Indication: Infection
  3. CIPROFLOXACIN [Suspect]
     Active Substance: CIPROFLOXACIN
     Indication: Infection
     Dosage: DOSAGE FORM: NOT SPECIFIED
  4. TAVNEOS [Suspect]
     Active Substance: AVACOPAN
     Indication: Lung disorder
     Dosage: DOSAGE FORM: CAPSULE
  5. TAVNEOS [Suspect]
     Active Substance: AVACOPAN
     Indication: Granulomatosis with polyangiitis
     Dosage: FOA: CAPSULE
     Route: 048
  6. RITUXIMAB [Concomitant]
     Active Substance: RITUXIMAB
     Indication: Lung disorder
  7. RITUXIMAB [Concomitant]
     Active Substance: RITUXIMAB
     Indication: Granulomatosis with polyangiitis
  8. IMMUNOGLOBULINS [Concomitant]
     Indication: Lung disorder
     Dosage: ROA: SUBCUTANEOUS
     Route: 058
  9. FLUCONAZOLE [Concomitant]
     Active Substance: FLUCONAZOLE
     Indication: Product used for unknown indication
     Dosage: NOT SPECIFIED
  10. HIZENTRA [Concomitant]
     Active Substance: HUMAN IMMUNOGLOBULIN G
     Indication: Immune system disorder
     Dosage: FOA: SOLUTION
  11. HIZENTRA [Concomitant]
     Active Substance: HUMAN IMMUNOGLOBULIN G
     Indication: Granulomatosis with polyangiitis
  12. PREDNISONE [Concomitant]
     Active Substance: PREDNISONE
     Indication: Granulomatosis with polyangiitis
     Dosage: NOT SPECIFIED

REACTIONS (12)
  - Cardiac arrest [Fatal]
  - Off label use [Fatal]
  - Infection [Fatal]
  - Seizure [Fatal]
  - Aspiration [Fatal]
  - Cytomegalovirus infection [Fatal]
  - Fungal infection [Fatal]
  - Hypoxia [Fatal]
  - Pseudomonas infection [Fatal]
  - Raoultella ornithinolytica infection [Fatal]
  - Serratia infection [Fatal]
  - Staphylococcal infection [Fatal]
